FAERS Safety Report 6346671-4 (Version None)
Quarter: 2009Q3

REPORT INFORMATION
  Report Type: 
  Country: None (occurrence: None)
  Receive Date: 20090909
  Receipt Date: 20090904
  Transmission Date: 20100115
  Serious: Yes (Death)
  Sender: FDA-Public Use
  Company Number: US-GILEAD-2009-0024125

PATIENT
  Sex: Male

DRUGS (10)
  1. LETAIRIS [Suspect]
     Indication: PULMONARY ARTERIAL HYPERTENSION
     Route: 048
     Dates: start: 20090814
  2. REVATIO [Concomitant]
  3. NORVASC [Concomitant]
  4. ALLOPURINOL [Concomitant]
  5. XANAX [Concomitant]
  6. TEMAZEPAM [Concomitant]
  7. ENSURE HP [Concomitant]
  8. NAC 600 [Concomitant]
  9. COQ-10 [Concomitant]
  10. CENTRUM CHW SILVER [Concomitant]

REACTIONS (1)
  - DEATH [None]
